FAERS Safety Report 5384606-1 (Version None)
Quarter: 2007Q3

REPORT INFORMATION
  Report Type: 
  Country: None (occurrence: None)
  Receive Date: 20070711
  Receipt Date: 20070704
  Transmission Date: 20080115
  Serious: Yes (Hospitalization)
  Sender: FDA-Public Use
  Company Number: IT-ROXANE LABORATORIES, INC-2007-BP-16891RO

PATIENT
  Age: 67 Year
  Sex: Female

DRUGS (2)
  1. DEXAMETHASONE 0.5MG TAB [Suspect]
  2. PHENOBARBITAL TAB [Suspect]

REACTIONS (1)
  - TOXIC EPIDERMAL NECROLYSIS [None]
